FAERS Safety Report 5098074-0 (Version None)
Quarter: 2006Q3

REPORT INFORMATION
  Report Type: 
  Country: None (occurrence: None)
  Receive Date: 20060906
  Receipt Date: 20060405
  Transmission Date: 20061208
  Serious: No
  Sender: FDA-Public Use
  Company Number: US-GLAXOSMITHKLINE-A0600587A

PATIENT
  Age: 69 Year
  Sex: Female

DRUGS (11)
  1. REQUIP [Suspect]
     Indication: RESTLESS LEGS SYNDROME
     Dosage: 4MG PER DAY
     Route: 048
     Dates: start: 20050601
  2. PEPCID [Concomitant]
  3. LOPRESSOR [Concomitant]
  4. LIPITOR [Concomitant]
  5. NORVASC [Concomitant]
  6. PERIOSTAT [Concomitant]
  7. LEXAPRO [Concomitant]
  8. IRON TABLETS [Concomitant]
  9. NOVOLOG [Concomitant]
  10. HUMALOG [Concomitant]
  11. BYETTA [Concomitant]

REACTIONS (1)
  - THERAPEUTIC RESPONSE DECREASED [None]
